FAERS Safety Report 24292542 (Version 1)
Quarter: 2024Q3

REPORT INFORMATION
  Report Type: Spontaneous
  Country: MM (occurrence: MM)
  Receive Date: 20240906
  Receipt Date: 20240906
  Transmission Date: 20241016
  Serious: Yes (Life-Threatening)
  Sender: BIOCON
  Company Number: MM-BIOCON BIOLOGICS LIMITED-BBL2024006471

PATIENT

DRUGS (1)
  1. INSULIN HUMAN [Suspect]
     Active Substance: INSULIN HUMAN
     Indication: Diabetes mellitus
     Dosage: 30 UNIT PER DOSE, TWICE DAILY
     Route: 065
     Dates: start: 20240824, end: 20240826

REACTIONS (5)
  - Blood glucose increased [Unknown]
  - Pollakiuria [Unknown]
  - Thirst [Unknown]
  - Dizziness [Unknown]
  - Hyperhidrosis [Unknown]

NARRATIVE: CASE EVENT DATE: 20240824
